FAERS Safety Report 9220054 (Version 1)
Quarter: 2013Q2

REPORT INFORMATION
  Report Type: Spontaneous
  Country: US (occurrence: US)
  Receive Date: 20130409
  Receipt Date: 20130409
  Transmission Date: 20140414
  Serious: No
  Sender: FDA-Public Use
  Company Number: US-B.I. PHARMACEUTICALS,INC./RIDGEFIELD-2013-BI-05648BP

PATIENT
  Age: 90 Year
  Sex: Male
  Weight: 85 kg

DRUGS (8)
  1. PRADAXA [Suspect]
     Indication: ATRIAL FIBRILLATION
     Dosage: 300 MG
     Route: 048
     Dates: start: 20130207, end: 20130215
  2. CARVEDILOL [Concomitant]
     Dosage: 6.25 MG
     Route: 048
  3. OMEPRAZOLE [Concomitant]
     Dosage: 20 MG
     Route: 048
  4. ASPIRIN [Concomitant]
     Dosage: 325 MG
     Route: 048
  5. MULTIVITAMIN [Concomitant]
     Route: 048
  6. LISINOPRIL [Concomitant]
     Dosage: 10 MG
     Route: 048
  7. LEVOTHYROXINE [Concomitant]
     Dosage: 100 MCG
     Route: 048
  8. FUROSEMIDE [Concomitant]
     Dosage: 40 MG
     Route: 048

REACTIONS (3)
  - Rash [Recovered/Resolved]
  - Skin disorder [Unknown]
  - Pruritus [Unknown]
